FAERS Safety Report 5158981-7 (Version None)
Quarter: 2006Q4

REPORT INFORMATION
  Report Type: 
  Country: None (occurrence: None)
  Receive Date: 20061117
  Receipt Date: 20061109
  Transmission Date: 20070319
  Serious: Yes (Other)
  Sender: FDA-Public Use
  Company Number: HQWYE146110NOV06

PATIENT
  Age: 47 Year
  Sex: Female
  Weight: 120.31 kg

DRUGS (5)
  1. ADVIL [Suspect]
     Indication: PAIN
     Dosage: TWO LIQUI-GELS AS NEEDED, ORAL
     Route: 048
     Dates: end: 20061107
  2. AMARYL [Concomitant]
  3. PROVENTIL (SALBUTAMOL SULFATE) [Concomitant]
  4. SPIRONOLACTONE [Concomitant]
  5. VITAMIN B-12 [Concomitant]

REACTIONS (7)
  - LIP SWELLING [None]
  - LOCAL SWELLING [None]
  - OEDEMA PERIPHERAL [None]
  - PRURITUS [None]
  - SWELLING FACE [None]
  - SWOLLEN TONGUE [None]
  - URTICARIA [None]
